FAERS Safety Report 15788593 (Version 1)
Quarter: 2019Q1

REPORT INFORMATION
  Report Type: Report from Study
  Country: CO (occurrence: CO)
  Receive Date: 20190104
  Receipt Date: 20190104
  Transmission Date: 20190417
  Serious: Yes (Death, Other)
  Sender: FDA-Public Use
  Company Number: PHHY2018CO014599

PATIENT
  Age: 73 Year
  Sex: Female

DRUGS (2)
  1. AFINITOR [Suspect]
     Active Substance: EVEROLIMUS
     Indication: BREAST CANCER
     Dosage: 5 MG, QD
     Route: 048
     Dates: start: 201404, end: 201807
  2. AFINITOR [Suspect]
     Active Substance: EVEROLIMUS
     Dosage: 10 MG, QD
     Route: 048

REACTIONS (4)
  - Death [Fatal]
  - Drug ineffective [Unknown]
  - Malignant neoplasm progression [Unknown]
  - Breast cancer [Unknown]

NARRATIVE: CASE EVENT DATE: 20181030
